FAERS Safety Report 24961300 (Version 1)
Quarter: 2025Q1

REPORT INFORMATION
  Report Type: Spontaneous
  Country: US (occurrence: None)
  Receive Date: 20250212
  Receipt Date: 20250212
  Transmission Date: 20250408
  Serious: Yes (unspecified)
  Sender: FDA-CTU
  Company Number: None

PATIENT
  Age: 76 Year
  Sex: Female
  Weight: 65.7 kg

DRUGS (1)
  1. GAMMAGARD LIQUID [Suspect]
     Active Substance: HUMAN IMMUNOGLOBULIN G
     Indication: Blood immunoglobulin G decreased
     Route: 042
     Dates: start: 20250124

REACTIONS (4)
  - Infusion related reaction [None]
  - Flushing [None]
  - Feeling hot [None]
  - Nausea [None]

NARRATIVE: CASE EVENT DATE: 20250124
